FAERS Safety Report 6276869-5 (Version None)
Quarter: 2009Q3

REPORT INFORMATION
  Report Type: 
  Country: None (occurrence: None)
  Receive Date: 20090722
  Receipt Date: 20080925
  Transmission Date: 20100115
  Serious: Yes (Hospitalization)
  Sender: FDA-Public Use
  Company Number: US-BRISTOL-MYERS SQUIBB COMPANY-14347918

PATIENT
  Age: 52 Year
  Sex: Male

DRUGS (8)
  1. COUMADIN [Suspect]
     Indication: PULMONARY HYPERTENSION
  2. LETAIRIS [Suspect]
     Indication: PULMONARY HYPERTENSION
     Route: 048
     Dates: start: 20071120
  3. SILDENAFIL CITRATE [Concomitant]
     Indication: PULMONARY HYPERTENSION
  4. DIGOXIN [Concomitant]
  5. COLCHICINE [Concomitant]
  6. ALLOPURINOL [Concomitant]
  7. NEURONTIN [Concomitant]
  8. TREPROSTINIL [Concomitant]
     Indication: PULMONARY HYPERTENSION

REACTIONS (1)
  - SUBDURAL HAEMATOMA [None]
